FAERS Safety Report 6840035-2 (Version None)
Quarter: 2010Q3

REPORT INFORMATION
  Report Type: 
  Country: None (occurrence: None)
  Receive Date: 20100713
  Receipt Date: 20100713
  Transmission Date: 20110219
  Serious: Yes (Hospitalization)
  Sender: FDA-Public Use
  Company Number: None

PATIENT
  Sex: Female
  Weight: 77.1115 kg

DRUGS (3)
  1. YAZ [Suspect]
     Indication: CONTRACEPTION
     Dosage: 3-0.02 MG 1X PER DAY
     Dates: start: 20071101, end: 20100629
  2. YAZ [Suspect]
     Indication: MENSTRUAL CYCLE MANAGEMENT
     Dosage: 3-0.02 MG 1X PER DAY
     Dates: start: 20071101, end: 20100629
  3. ADDERALL 10 [Concomitant]

REACTIONS (1)
  - THROMBOSIS [None]
